FAERS Safety Report 6717817-0 (Version None)
Quarter: 2010Q2

REPORT INFORMATION
  Report Type: 
  Country: None (occurrence: None)
  Receive Date: 20100510
  Receipt Date: 20100409
  Transmission Date: 20101027
  Serious: No
  Sender: FDA-Public Use
  Company Number: PR-BAYER-201016055NA

PATIENT
  Age: 29 Year
  Sex: Female

DRUGS (1)
  1. ULTRAVIST 300 [Suspect]
     Indication: DRUG USE FOR UNKNOWN INDICATION
     Dosage: DOSE 75MG
     Route: 042
     Dates: start: 20100206, end: 20100206

REACTIONS (3)
  - DYSPHAGIA [None]
  - DYSPNOEA [None]
  - NASAL CONGESTION [None]
